FAERS Safety Report 4341823-7 (Version None)
Quarter: 2004Q2

REPORT INFORMATION
  Report Type: 
  Country: None (occurrence: None)
  Receive Date: 20040415
  Receipt Date: 20040325
  Transmission Date: 20050107
  Serious: Yes (Other)
  Sender: FDA-Public Use
  Company Number: US_0403101796

PATIENT
  Age: 78 Year
  Sex: Female

DRUGS (6)
  1. CEFACLOR [Suspect]
     Indication: ABDOMINAL PAIN
     Dosage: 3 DSG FORM/1 DAY
     Dates: start: 20040202, end: 20040211
  2. TIQUIZIUM BROMIDE [Concomitant]
  3. SCOPOLAMINE [Concomitant]
  4. NIFEDIPINE [Concomitant]
  5. NADOLOL [Concomitant]
  6. ALDLOXAL /MAGNESIUM ALUMINOMETASILICATE [Concomitant]

REACTIONS (2)
  - DIALYSIS [None]
  - RENAL FAILURE [None]
